FAERS Safety Report 9255261 (Version 1)
Quarter: 2013Q2

REPORT INFORMATION
  Report Type: Spontaneous
  Country: DK (occurrence: DK)
  Receive Date: 20130425
  Receipt Date: 20130425
  Transmission Date: 20140414
  Serious: Yes (Disabling, Other)
  Sender: FDA-Public Use
  Company Number: DK-009507513-1210DNK013560

PATIENT
  Age: 62 Year
  Sex: Male

DRUGS (4)
  1. ZOCOR [Suspect]
     Indication: HYPERTRIGLYCERIDAEMIA
     Dosage: 10 MG DAILY
     Dates: start: 20080310, end: 20090917
  2. ZOCOR [Suspect]
     Dosage: 40 MG DAILY
     Dates: start: 20090917, end: 20090920
  3. ORABET (METFORMIN HYDROCHLORIDE) [Concomitant]
     Dosage: 500 MILLIGRAM(S)
     Route: 048
  4. ALPRAZOLAM [Concomitant]
     Dosage: 0.5 MILLIGRAM(S)
     Route: 048

REACTIONS (13)
  - Muscle atrophy [Unknown]
  - Alanine aminotransferase increased [Not Recovered/Not Resolved]
  - Blood creatine phosphokinase increased [Not Recovered/Not Resolved]
  - Myalgia [Not Recovered/Not Resolved]
  - Myopathy [Unknown]
  - Feeling hot [Not Recovered/Not Resolved]
  - Pruritus generalised [Not Recovered/Not Resolved]
  - Malaise [Unknown]
  - Weight decreased [Not Recovered/Not Resolved]
  - Decreased immune responsiveness [Not Recovered/Not Resolved]
  - Ejaculation disorder [Not Recovered/Not Resolved]
  - Cataract [Not Recovered/Not Resolved]
  - Tooth disorder [Not Recovered/Not Resolved]
